FAERS Safety Report 7499565-5 (Version None)
Quarter: 2011Q2

REPORT INFORMATION
  Report Type: 
  Country: None (occurrence: None)
  Receive Date: 20110524
  Receipt Date: 20110511
  Transmission Date: 20111010
  Serious: Yes (Hospitalization)
  Sender: FDA-Public Use
  Company Number: SE-ASTRAZENECA-2011SE28416

PATIENT
  Age: 86 Year
  Sex: Female

DRUGS (7)
  1. ALLOPURINOL [Concomitant]
     Route: 065
  2. LEVOTHYROXINE SODIUM [Concomitant]
     Route: 065
  3. ATACAND [Suspect]
     Indication: CARDIAC FAILURE
     Route: 048
     Dates: end: 20101101
  4. KALCIPOS-D [Concomitant]
     Route: 065
  5. TROMBYL [Concomitant]
     Route: 065
  6. LASIX [Concomitant]
     Route: 065
  7. ATACAND [Suspect]
     Indication: OEDEMA DUE TO CARDIAC DISEASE
     Route: 048
     Dates: end: 20101101

REACTIONS (1)
  - HYPOTENSION [None]
